FAERS Safety Report 7200485-1 (Version None)
Quarter: 2010Q4

REPORT INFORMATION
  Report Type: 
  Country: None (occurrence: None)
  Receive Date: 20101228
  Receipt Date: 20101222
  Transmission Date: 20110411
  Serious: Yes (Hospitalization)
  Sender: FDA-Public Use
  Company Number: DE-PFIZER INC-2010177241

PATIENT

DRUGS (1)
  1. TORISEL [Suspect]

REACTIONS (2)
  - ABDOMINAL PAIN [None]
  - LIVER DISORDER [None]
